FAERS Safety Report 25741744 (Version 3)
Quarter: 2025Q3

REPORT INFORMATION
  Report Type: Report from Study
  Country: US (occurrence: US)
  Receive Date: 20250829
  Receipt Date: 20250909
  Transmission Date: 20251020
  Serious: Yes (Death, Other)
  Sender: ALNYLAM PHARMACEUTICALS
  Company Number: US-ALNYLAM PHARMACEUTICALS, INC.-ALN-2025-005204

PATIENT

DRUGS (1)
  1. ONPATTRO [Suspect]
     Active Substance: PATISIRAN SODIUM
     Indication: Hereditary neuropathic amyloidosis
     Route: 065
     Dates: start: 20190228, end: 20190228

REACTIONS (6)
  - Death [Fatal]
  - Amyloidosis [Unknown]
  - Failure to thrive [Unknown]
  - Pneumonia aspiration [Unknown]
  - Dysphagia [Unknown]
  - Malnutrition [Unknown]

NARRATIVE: CASE EVENT DATE: 20250824
